FAERS Safety Report 10661792 (Version 1)
Quarter: 2014Q4

REPORT INFORMATION
  Report Type: Spontaneous
  Country: US (occurrence: None)
  Receive Date: 20141216
  Receipt Date: 20141216
  Transmission Date: 20150529
  Serious: Yes (Other)
  Sender: FDA-Public Use
  Company Number: NSR_01715_2014

PATIENT
  Age: 67 Year
  Sex: Female

DRUGS (1)
  1. BACLOFEN. [Suspect]
     Active Substance: BACLOFEN
     Indication: MUSCLE SPASTICITY
     Dosage: TITRATED DOWN FROM 530 MCG DAILY TO 96 MCG PER DAILY AND THEN TITRATED UP TO 130 MCG DAILY
     Route: 037

REACTIONS (2)
  - Amnesia [None]
  - Anterograde amnesia [None]
